FAERS Safety Report 5944342-7 (Version None)
Quarter: 2008Q4

REPORT INFORMATION
  Report Type: 
  Country: None (occurrence: None)
  Receive Date: 20081105
  Receipt Date: 20081026
  Transmission Date: 20090506
  Serious: Yes (Death)
  Sender: FDA-Public Use
  Company Number: PAR_02404_2008

PATIENT
  Sex: Male

DRUGS (2)
  1. MEGACE ES [Suspect]
     Indication: DECREASED APPETITE
     Dosage: DF
     Dates: start: 20070101
  2. MARINOL [Suspect]
     Indication: DRUG USE FOR UNKNOWN INDICATION
     Dosage: DF
     Dates: start: 20080101

REACTIONS (1)
  - DEATH [None]
